FAERS Safety Report 25252254 (Version 1)
Quarter: 2025Q2

REPORT INFORMATION
  Report Type: Spontaneous
  Country: GB (occurrence: GB)
  Receive Date: 20250429
  Receipt Date: 20250429
  Transmission Date: 20250717
  Serious: Yes (Other)
  Sender: MYLAN
  Company Number: GB-MHRA-EMIS-9452-f38cf993-e42e-4c39-a97f-7dc29349b29c

PATIENT
  Age: 24 Year
  Sex: Female
  Weight: 45 kg

DRUGS (20)
  1. DOXYCYCLINE [Suspect]
     Active Substance: DOXYCYCLINE
     Indication: Product used for unknown indication
     Dosage: 1 DOSAGE FORM, QD (ONE TO BE TAKEN EACH DAY - ENSURE AEQUATE CONTRACEPTION AS CAN CAUSE DAMAGE TO DEVELOPING BABY)
     Dates: start: 20250423
  2. DOXYCYCLINE [Suspect]
     Active Substance: DOXYCYCLINE
     Dosage: 1 DOSAGE FORM, QD (ONE TO BE TAKEN EACH DAY - ENSURE AEQUATE CONTRACEPTION AS CAN CAUSE DAMAGE TO DEVELOPING BABY)
     Route: 065
     Dates: start: 20250423
  3. DOXYCYCLINE [Suspect]
     Active Substance: DOXYCYCLINE
     Dosage: 1 DOSAGE FORM, QD (ONE TO BE TAKEN EACH DAY - ENSURE AEQUATE CONTRACEPTION AS CAN CAUSE DAMAGE TO DEVELOPING BABY)
     Route: 065
     Dates: start: 20250423
  4. DOXYCYCLINE [Suspect]
     Active Substance: DOXYCYCLINE
     Dosage: 1 DOSAGE FORM, QD (ONE TO BE TAKEN EACH DAY - ENSURE AEQUATE CONTRACEPTION AS CAN CAUSE DAMAGE TO DEVELOPING BABY)
     Dates: start: 20250423
  5. FEXOFENADINE [Concomitant]
     Active Substance: FEXOFENADINE HYDROCHLORIDE
     Dosage: 1 DOSAGE FORM, QD (ONE TO BE TAKEN EACH DAY)
     Dates: start: 20250403
  6. FEXOFENADINE [Concomitant]
     Active Substance: FEXOFENADINE HYDROCHLORIDE
     Dosage: 1 DOSAGE FORM, QD (ONE TO BE TAKEN EACH DAY)
     Route: 065
     Dates: start: 20250403
  7. FEXOFENADINE [Concomitant]
     Active Substance: FEXOFENADINE HYDROCHLORIDE
     Dosage: 1 DOSAGE FORM, QD (ONE TO BE TAKEN EACH DAY)
     Route: 065
     Dates: start: 20250403
  8. FEXOFENADINE [Concomitant]
     Active Substance: FEXOFENADINE HYDROCHLORIDE
     Dosage: 1 DOSAGE FORM, QD (ONE TO BE TAKEN EACH DAY)
     Dates: start: 20250403
  9. DOXYCYCLINE [Concomitant]
     Active Substance: DOXYCYCLINE
     Dosage: 1 DOSAGE FORM, QD (ONE TO BE TAKEN EACH DAY - ENSURE AEQUATE CONTRACEPTION AS CAN CAUSE DAMAGE TO DEVELOPING BABY)
     Dates: start: 20250423
  10. DOXYCYCLINE [Concomitant]
     Active Substance: DOXYCYCLINE
     Dosage: 1 DOSAGE FORM, QD (ONE TO BE TAKEN EACH DAY - ENSURE AEQUATE CONTRACEPTION AS CAN CAUSE DAMAGE TO DEVELOPING BABY)
     Route: 065
     Dates: start: 20250423
  11. DOXYCYCLINE [Concomitant]
     Active Substance: DOXYCYCLINE
     Dosage: 1 DOSAGE FORM, QD (ONE TO BE TAKEN EACH DAY - ENSURE AEQUATE CONTRACEPTION AS CAN CAUSE DAMAGE TO DEVELOPING BABY)
     Route: 065
     Dates: start: 20250423
  12. DOXYCYCLINE [Concomitant]
     Active Substance: DOXYCYCLINE
     Dosage: 1 DOSAGE FORM, QD (ONE TO BE TAKEN EACH DAY - ENSURE AEQUATE CONTRACEPTION AS CAN CAUSE DAMAGE TO DEVELOPING BABY)
     Dates: start: 20250423
  13. AZELAIC ACID [Concomitant]
     Active Substance: AZELAIC ACID
     Dosage: 60 GRAM, BID (APPLY TWICE A DAY)
     Dates: start: 20250423
  14. AZELAIC ACID [Concomitant]
     Active Substance: AZELAIC ACID
     Dosage: 60 GRAM, BID (APPLY TWICE A DAY)
     Route: 065
     Dates: start: 20250423
  15. AZELAIC ACID [Concomitant]
     Active Substance: AZELAIC ACID
     Dosage: 60 GRAM, BID (APPLY TWICE A DAY)
     Route: 065
     Dates: start: 20250423
  16. AZELAIC ACID [Concomitant]
     Active Substance: AZELAIC ACID
     Dosage: 60 GRAM, BID (APPLY TWICE A DAY)
     Dates: start: 20250423
  17. FLUCLOXACILLIN [Concomitant]
     Active Substance: FLUCLOXACILLIN
     Indication: Rash
     Dosage: 2 DOSAGE FORM, QID
     Dates: start: 20250424
  18. FLUCLOXACILLIN [Concomitant]
     Active Substance: FLUCLOXACILLIN
     Dosage: 2 DOSAGE FORM, QID
     Route: 065
     Dates: start: 20250424
  19. FLUCLOXACILLIN [Concomitant]
     Active Substance: FLUCLOXACILLIN
     Dosage: 2 DOSAGE FORM, QID
     Route: 065
     Dates: start: 20250424
  20. FLUCLOXACILLIN [Concomitant]
     Active Substance: FLUCLOXACILLIN
     Dosage: 2 DOSAGE FORM, QID
     Dates: start: 20250424

REACTIONS (1)
  - Acute generalised exanthematous pustulosis [Unknown]

NARRATIVE: CASE EVENT DATE: 20250424
